FAERS Safety Report 9330819 (Version 1)
Quarter: 2013Q2

REPORT INFORMATION
  Report Type: Spontaneous
  Country: US (occurrence: None)
  Receive Date: 20130604
  Receipt Date: 20130604
  Transmission Date: 20140414
  Serious: Yes (Hospitalization)
  Sender: FDA-Public Use
  Company Number: None

PATIENT
  Age: 49 Year
  Sex: Female

DRUGS (18)
  1. TRIAMTEREN [Suspect]
     Indication: HYPERTENSION
     Route: 048
  2. FUROSEMIDE 40 MG [Suspect]
     Indication: HYPERTENSION
     Route: 048
  3. ESSTRADIOL [Concomitant]
  4. COREG [Concomitant]
  5. NEXIUM [Concomitant]
  6. ASA [Concomitant]
  7. NORVASC [Concomitant]
  8. ZANAFLEX [Concomitant]
  9. TRAZODONE [Concomitant]
  10. LYRICA [Concomitant]
  11. CYMBALTA [Concomitant]
  12. KLONOPIN [Concomitant]
  13. EXALGO [Concomitant]
  14. DILAUDID [Concomitant]
  15. MULTIVITE [Concomitant]
  16. CALCIUM [Concomitant]
  17. IBUPROFEN [Concomitant]
  18. ZOCOR [Concomitant]

REACTIONS (1)
  - Hypokalaemia [None]
